FAERS Safety Report 23727527 (Version 4)
Quarter: 2025Q1

REPORT INFORMATION
  Report Type: Spontaneous
  Country: JP (occurrence: JP)
  Receive Date: 20240410
  Receipt Date: 20250114
  Transmission Date: 20250408
  Serious: Yes (Hospitalization, Other)
  Sender: MERCK
  Company Number: JP-MSD-2404JPN000286J

PATIENT
  Age: 70 Year
  Sex: Female

DRUGS (2)
  1. KEYTRUDA [Suspect]
     Active Substance: PEMBROLIZUMAB
     Indication: Uterine cancer
     Route: 041
  2. LENVATINIB MESYLATE [Suspect]
     Active Substance: LENVATINIB MESYLATE
     Indication: Uterine cancer
     Route: 048

REACTIONS (2)
  - Adrenocorticotropic hormone deficiency [Unknown]
  - Immune-mediated hypothyroidism [Not Recovered/Not Resolved]
